FAERS Safety Report 22956821 (Version 2)
Quarter: 2023Q4

REPORT INFORMATION
  Report Type: Spontaneous
  Country: CA (occurrence: CA)
  Receive Date: 20230919
  Receipt Date: 20231108
  Transmission Date: 20240110
  Serious: Yes (Other)
  Sender: FDA-Public Use
  Company Number: CA-CELLTRION INC.-2023CA004584

PATIENT

DRUGS (9)
  1. INFLECTRA [Suspect]
     Active Substance: INFLIXIMAB-DYYB
     Indication: Colitis ulcerative
     Dosage: 240 MG, (5MG/KG) INDUCTION: Q 0, 1, 2 AND 6 WEEKS MAINTENANCE: 8 WEEKS
     Route: 042
     Dates: start: 20230220
  2. INFLECTRA [Suspect]
     Active Substance: INFLIXIMAB-DYYB
     Dosage: 240 MG INDUCTION: Q 0, 1, 2 AND 6 WEEKS MAINTENANCE: 8 WEEKS
     Route: 042
     Dates: start: 20230228
  3. INFLECTRA [Suspect]
     Active Substance: INFLIXIMAB-DYYB
     Dosage: 240 MG ON WEEK 2 (W1,W2,W6 THEN Q8)
     Route: 042
     Dates: start: 20230314
  4. INFLECTRA [Suspect]
     Active Substance: INFLIXIMAB-DYYB
     Dosage: 240 MG ON WEEK 6
     Route: 042
     Dates: start: 20230414
  5. INFLECTRA [Suspect]
     Active Substance: INFLIXIMAB-DYYB
     Dosage: 240 MG EVERY 8 WEEKS
     Route: 042
     Dates: start: 20230608
  6. INFLECTRA [Suspect]
     Active Substance: INFLIXIMAB-DYYB
     Dosage: 240 MG, AFTER 8 WEEKS
     Route: 042
     Dates: start: 20230805
  7. CALCIUM [Concomitant]
     Active Substance: CALCIUM
     Dosage: UNK
  8. PREDNISONE [Concomitant]
     Active Substance: PREDNISONE
     Dosage: UNK
  9. CHOLECALCIFEROL [Concomitant]
     Active Substance: CHOLECALCIFEROL
     Dosage: UNK

REACTIONS (7)
  - Sleep apnoea syndrome [Unknown]
  - Fatigue [Unknown]
  - Accident [Unknown]
  - Concussion [Recovered/Resolved]
  - Condition aggravated [Recovered/Resolved]
  - Off label use [Unknown]
  - Off label use [Unknown]

NARRATIVE: CASE EVENT DATE: 20230101
